FAERS Safety Report 5338441-0 (Version None)
Quarter: 2007Q2

REPORT INFORMATION
  Report Type: 
  Country: None (occurrence: None)
  Receive Date: 20070405
  Receipt Date: 20070207
  Transmission Date: 20071010
  Serious: No
  Sender: FDA-Public Use
  Company Number: US200611001665

PATIENT
  Sex: Male

DRUGS (4)
  1. STRATTERA [Suspect]
     Dosage: SEE IMAGE
     Dates: end: 20060101
  2. STRATTERA [Suspect]
     Dosage: SEE IMAGE
     Dates: start: 20060101, end: 20070101
  3. CYMBALTA [Suspect]
  4. ABILIFY [Concomitant]

REACTIONS (2)
  - PRESCRIBED OVERDOSE [None]
  - URINARY HESITATION [None]
